FAERS Safety Report 25918691 (Version 1)
Quarter: 2025Q4

REPORT INFORMATION
  Report Type: Spontaneous
  Country: US (occurrence: None)
  Receive Date: 20251010
  Receipt Date: 20251010
  Transmission Date: 20260117
  Serious: Yes (Death)
  Sender: FDA-CTU
  Company Number: None

PATIENT
  Age: 85 Year
  Sex: Male

DRUGS (1)
  1. REPATHA [Suspect]
     Active Substance: EVOLOCUMAB
     Indication: Hypercholesterolaemia
     Dosage: 1 ML EVERY 14 DAYS SUBCUTANEOUS?
     Route: 058
     Dates: start: 20200204, end: 20250906

REACTIONS (1)
  - Death [None]

NARRATIVE: CASE EVENT DATE: 20250906
